FAERS Safety Report 5380619-4 (Version None)
Quarter: 2007Q2

REPORT INFORMATION
  Report Type: 
  Country: None (occurrence: None)
  Receive Date: 20070530
  Receipt Date: 20070301
  Transmission Date: 20071010
  Serious: No
  Sender: FDA-Public Use
  Company Number: 2007PV030924

PATIENT
  Age: 56 Year
  Sex: Female
  Weight: 85.7298 kg

DRUGS (5)
  1. BYETTA [Suspect]
     Indication: DIABETES MELLITUS NON-INSULIN-DEPENDENT
     Dosage: 10 MCG; BID; SC; 5 MCG; BID; SC
     Route: 058
     Dates: start: 20070101, end: 20070101
  2. BYETTA [Suspect]
     Indication: DIABETES MELLITUS NON-INSULIN-DEPENDENT
     Dosage: 10 MCG; BID; SC; 5 MCG; BID; SC
     Route: 058
     Dates: start: 20070101
  3. AMARYL [Concomitant]
  4. METFORMIN HCL [Concomitant]
  5. COZAAR [Concomitant]

REACTIONS (2)
  - BLOOD GLUCOSE DECREASED [None]
  - WEIGHT DECREASED [None]
